FAERS Safety Report 4795627-1 (Version None)
Quarter: 2005Q4

REPORT INFORMATION
  Report Type: 
  Country: None (occurrence: None)
  Receive Date: 20051007
  Receipt Date: 20051007
  Transmission Date: 20060501
  Serious: Yes (Congenital Anomaly, Other)
  Sender: FDA-Public Use
  Company Number: None

PATIENT
  Sex: Female
  Weight: 58.9676 kg

DRUGS (3)
  1. PAXIL [Suspect]
     Indication: ANXIETY
     Dosage: 20MG   QD   PO   (DURING 2 PREGNANCIES)
     Route: 048
     Dates: start: 19930801, end: 20051006
  2. PAXIL [Suspect]
     Indication: DEPRESSION
     Dosage: 20MG   QD   PO   (DURING 2 PREGNANCIES)
     Route: 048
     Dates: start: 19930801, end: 20051006
  3. PAXIL [Suspect]
     Indication: POST-TRAUMATIC STRESS DISORDER
     Dosage: 20MG   QD   PO   (DURING 2 PREGNANCIES)
     Route: 048
     Dates: start: 19930801, end: 20051006

REACTIONS (6)
  - ABORTION SPONTANEOUS [None]
  - BLOOD HUMAN CHORIONIC GONADOTROPIN INCREASED [None]
  - DEVELOPMENTAL DELAY [None]
  - DRUG EXPOSURE DURING PREGNANCY [None]
  - PREGNANCY [None]
  - THANATOPHORIC DWARFISM [None]
